FAERS Safety Report 9146680 (Version 1)
Quarter: 2013Q1

REPORT INFORMATION
  Report Type: Spontaneous
  Country: US (occurrence: US)
  Receive Date: 20130307
  Receipt Date: 20130307
  Transmission Date: 20140127
  Serious: Yes (Hospitalization)
  Sender: FDA-Public Use
  Company Number: US-009507513-1303USA002247

PATIENT
  Sex: Male
  Weight: 95.24 kg

DRUGS (1)
  1. INVANZ [Suspect]
     Indication: ARTHRITIS BACTERIAL
     Dosage: DAILY DOSE = 1 (UNITS UNSPECIFIED)
     Route: 042

REACTIONS (2)
  - Confusional state [Recovered/Resolved]
  - Hallucination [Unknown]
